FAERS Safety Report 12764353 (Version 1)
Quarter: 2016Q3

REPORT INFORMATION
  Report Type: Spontaneous
  Country: GB (occurrence: GB)
  Receive Date: 20160920
  Receipt Date: 20160920
  Transmission Date: 20161109
  Serious: Yes (Death, Other)
  Sender: FDA-Public Use
  Company Number: GB-TEVA-692705ACC

PATIENT
  Age: 75 Year
  Sex: Female

DRUGS (7)
  1. ALENDRONIC ACID [Concomitant]
     Active Substance: ALENDRONIC ACID
  2. BISOPROLOL FUMARATE. [Suspect]
     Active Substance: BISOPROLOL FUMARATE
     Dosage: .5 DOSAGE FORMS DAILY;
     Dates: start: 2010, end: 2011
  3. BISOPROLOL FUMARATE. [Suspect]
     Active Substance: BISOPROLOL FUMARATE
     Indication: CARDIAC DISORDER
     Dosage: 2.5 MILLIGRAM DAILY;
     Dates: start: 2006, end: 2010
  4. WARFARIN [Concomitant]
     Active Substance: WARFARIN
  5. CANDESARTAN [Concomitant]
     Active Substance: CANDESARTAN
  6. ATORVASTATIN [Concomitant]
     Active Substance: ATORVASTATIN
  7. FUROSEMIDE. [Concomitant]
     Active Substance: FUROSEMIDE

REACTIONS (7)
  - Peripheral coldness [Not Recovered/Not Resolved]
  - Death [Fatal]
  - Peripheral swelling [Recovering/Resolving]
  - Pain in extremity [Unknown]
  - Leukaemia [Not Recovered/Not Resolved]
  - Skin discolouration [Not Recovered/Not Resolved]
  - Off label use [Unknown]

NARRATIVE: CASE EVENT DATE: 2010
